FAERS Safety Report 4758477-8 (Version None)
Quarter: 2005Q3

REPORT INFORMATION
  Report Type: 
  Country: None (occurrence: None)
  Receive Date: 20050830
  Receipt Date: 20050830
  Transmission Date: 20060218
  Serious: Yes (Life-Threatening, Hospitalization)
  Sender: FDA-Public Use
  Company Number: None

PATIENT
  Age: 55 Year
  Sex: Male
  Weight: 68.0396 kg

DRUGS (1)
  1. COPAXONE [Suspect]
     Dosage: 20MG   ONCE  DAILY  SQ
     Route: 058

REACTIONS (1)
  - ANAPHYLACTIC SHOCK [None]
